FAERS Safety Report 5041799-3 (Version None)
Quarter: 2006Q2

REPORT INFORMATION
  Report Type: 
  Country: None (occurrence: None)
  Receive Date: 20060630
  Receipt Date: 20060622
  Transmission Date: 20061013
  Serious: Yes (Other)
  Sender: FDA-Public Use
  Company Number: 200612481BWH

PATIENT
  Age: 72 Year
  Sex: Female
  Weight: 46.2669 kg

DRUGS (4)
  1. AVELOX [Suspect]
     Dosage: 400 MG, QD, ORAL
     Route: 048
     Dates: start: 20060416, end: 20060419
  2. PREVACID [Concomitant]
  3. PREMPRO [Concomitant]
  4. ALLEGRA [Concomitant]

REACTIONS (3)
  - HYPOAESTHESIA [None]
  - HYPOAESTHESIA ORAL [None]
  - NEUROPATHY PERIPHERAL [None]
